FAERS Safety Report 13843192 (Version 3)
Quarter: 2017Q4

REPORT INFORMATION
  Report Type: Spontaneous
  Country: US (occurrence: US)
  Receive Date: 20170808
  Receipt Date: 20171023
  Transmission Date: 20180320
  Serious: Yes (Other)
  Sender: FDA-Public Use
  Company Number: US-VANDA PHARMACEUTICALS, INC-2017TASUS001730

PATIENT
  Age: 61 Year
  Sex: Female
  Weight: 63.49 kg

DRUGS (1)
  1. HETLIOZ [Suspect]
     Active Substance: TASIMELTEON
     Indication: NON-24-HOUR SLEEP-WAKE DISORDER
     Dosage: 20 MG, QD AT BEDTIME
     Route: 048
     Dates: start: 20170429

REACTIONS (3)
  - Drug ineffective [Unknown]
  - Middle insomnia [Unknown]
  - Generalised tonic-clonic seizure [Unknown]

NARRATIVE: CASE EVENT DATE: 201707
